FAERS Safety Report 15523038 (Version 1)
Quarter: 2018Q4

REPORT INFORMATION
  Report Type: Report from Study
  Country: None (occurrence: US)
  Receive Date: 20181017
  Receipt Date: 20181017
  Transmission Date: 20190205
  Serious: Yes (Hospitalization)
  Sender: FDA-Public Use
  Company Number: US-ABBVIE-18K-163-2521223-00

PATIENT
  Age: 11 Year
  Sex: Male

DRUGS (1)
  1. HUMIRA [Suspect]
     Active Substance: ADALIMUMAB
     Indication: CROHN^S DISEASE
     Dosage: CITRATE FREE
     Route: 058
     Dates: start: 20180712

REACTIONS (7)
  - Muscle spasms [Recovered/Resolved]
  - Vomiting [Unknown]
  - Muscle spasms [Unknown]
  - Crohn^s disease [Unknown]
  - Vomiting [Recovered/Resolved]
  - Infection [Unknown]
  - Intestinal obstruction [Recovered/Resolved]

NARRATIVE: CASE EVENT DATE: 2018
